FAERS Safety Report 8001475-1 (Version None)
Quarter: 2011Q4

REPORT INFORMATION
  Report Type: 
  Country: None (occurrence: None)
  Receive Date: 20111222
  Receipt Date: 20111221
  Transmission Date: 20120403
  Serious: Yes (Other)
  Sender: FDA-Public Use
  Company Number: US-ROCHE-1010984

PATIENT
  Sex: Female

DRUGS (2)
  1. COPEGUS [Suspect]
     Indication: HEPATITIS C
     Dosage: DIVIDED DOSES, WEEK 6 OF TREATMENT
     Dates: start: 20110917
  2. PEGINTERFERON ALFA-2A [Suspect]
     Indication: HEPATITIS C
     Dosage: WEEK 6 OF TREATMENT
     Dates: start: 20110917

REACTIONS (12)
  - FATIGUE [None]
  - PRODUCTIVE COUGH [None]
  - BONE PAIN [None]
  - ANAEMIA [None]
  - INJECTION SITE ERYTHEMA [None]
  - STAPHYLOCOCCAL INFECTION [None]
  - COUGH [None]
  - ABDOMINAL HERNIA [None]
  - DYSPNOEA EXERTIONAL [None]
  - IRRITABILITY [None]
  - PRURITUS [None]
  - INFLUENZA LIKE ILLNESS [None]
